FAERS Safety Report 15408555 (Version 1)
Quarter: 2018Q3

REPORT INFORMATION
  Report Type: Spontaneous
  Country: JP (occurrence: JP)
  Receive Date: 20180920
  Receipt Date: 20180920
  Transmission Date: 20181010
  Serious: Yes (Other)
  Sender: FDA-Public Use
  Company Number: PHJP2018JP016603

PATIENT

DRUGS (1)
  1. AMANTADINE. [Suspect]
     Active Substance: AMANTADINE HYDROCHLORIDE
     Indication: ALTERED STATE OF CONSCIOUSNESS
     Dosage: UNK
     Route: 048

REACTIONS (2)
  - Delirium [Unknown]
  - Product use in unapproved indication [Unknown]
